FAERS Safety Report 10164555 (Version 2)
Quarter: 2014Q2

REPORT INFORMATION
  Report Type: Spontaneous
  Country: US (occurrence: US)
  Receive Date: 20140510
  Receipt Date: 20140510
  Transmission Date: 20141212
  Serious: No
  Sender: FDA-Public Use
  Company Number: US-BRISTOL-MYERS SQUIBB COMPANY-19545086

PATIENT
  Age: 49 Year
  Sex: Male
  Weight: 97.5 kg

DRUGS (6)
  1. BYDUREON [Suspect]
     Indication: TYPE 2 DIABETES MELLITUS
     Dosage: 25SEP13-9OCT13
     Route: 058
     Dates: start: 2013, end: 20131009
  2. HUMALOG [Concomitant]
     Dosage: HUMALOG 75/25
  3. METFORMIN [Concomitant]
  4. BYSTOLIC [Concomitant]
  5. EXFORGE HCT [Concomitant]
  6. PRAVASTATIN SODIUM [Concomitant]

REACTIONS (4)
  - Diarrhoea [Unknown]
  - Back pain [Unknown]
  - Pruritus [Unknown]
  - Herpes zoster [Unknown]
